FAERS Safety Report 8912711 (Version 1)
Quarter: 2012Q4

REPORT INFORMATION
  Report Type: 
  Country: NL (occurrence: NL)
  Receive Date: 20121116
  Receipt Date: 20121116
  Transmission Date: 20130627
  Serious: Yes (Other)
  Sender: FDA-Public Use
  Company Number: NL-TEVA-369165ISR

PATIENT
  Age: 78 Year
  Sex: Male

DRUGS (6)
  1. LEVOFLOXACINE [Suspect]
     Dosage: 500 Milligram Daily;
     Dates: start: 20121031, end: 20121103
  2. FENPROCOUMON [Concomitant]
  3. LANOXIN 0,0625 MG [Concomitant]
     Dosage: 31.25 Microgram Daily; one tablet every other day
  4. BUMETANIDE 2 MG [Concomitant]
     Dosage: 2 Milligram Daily;
  5. METOPROLOL 100 MG [Concomitant]
     Dosage: 100 Milligram Daily; in the morning
  6. METOPROLOL 50 MG [Concomitant]
     Dosage: 50 Milligram Daily; in the evening

REACTIONS (6)
  - International normalised ratio increased [Unknown]
  - Epistaxis [Recovered/Resolved]
  - Myalgia [Unknown]
  - Penis disorder [Unknown]
  - Fatigue [Unknown]
  - Tendon pain [Unknown]
